FAERS Safety Report 19739068 (Version 1)
Quarter: 2021Q3

REPORT INFORMATION
  Report Type: Report from Study
  Country: CA (occurrence: CA)
  Receive Date: 20210823
  Receipt Date: 20210823
  Transmission Date: 20211014
  Serious: Yes (Other)
  Sender: FDA-Public Use
  Company Number: CA-EISAI MEDICAL RESEARCH-EC-2021-098024

PATIENT
  Age: 57 Year
  Sex: Male

DRUGS (9)
  1. LENVIMA [Suspect]
     Active Substance: LENVATINIB
     Indication: PRODUCT USED FOR UNKNOWN INDICATION
     Route: 048
  2. LENVIMA [Suspect]
     Active Substance: LENVATINIB
     Route: 048
  3. SANDOSTATIN [Suspect]
     Active Substance: OCTREOTIDE ACETATE
     Route: 030
  4. SANDOSTATIN [Suspect]
     Active Substance: OCTREOTIDE ACETATE
     Route: 030
  5. SANDOSTATIN [Suspect]
     Active Substance: OCTREOTIDE ACETATE
     Route: 030
  6. LENVIMA [Suspect]
     Active Substance: LENVATINIB
     Route: 048
  7. NIFEDIPINE. [Concomitant]
     Active Substance: NIFEDIPINE
     Indication: PRODUCT USED FOR UNKNOWN INDICATION
     Route: 065
  8. SANDOSTATIN [Suspect]
     Active Substance: OCTREOTIDE ACETATE
     Indication: NEUROENDOCRINE TUMOUR
     Dosage: UNKNOWN DOSE AND FREQUENCY
     Route: 065
  9. SANDOSTATIN [Suspect]
     Active Substance: OCTREOTIDE ACETATE
     Route: 030

REACTIONS (59)
  - Eructation [Not Recovered/Not Resolved]
  - Stress [Not Recovered/Not Resolved]
  - Joint swelling [Not Recovered/Not Resolved]
  - Nasopharyngitis [Not Recovered/Not Resolved]
  - Faeces soft [Not Recovered/Not Resolved]
  - Epigastric discomfort [Not Recovered/Not Resolved]
  - Limb discomfort [Not Recovered/Not Resolved]
  - Hyperkeratosis [Not Recovered/Not Resolved]
  - Cough [Not Recovered/Not Resolved]
  - Fatigue [Not Recovered/Not Resolved]
  - Needle issue [Not Recovered/Not Resolved]
  - Blood uric acid increased [Not Recovered/Not Resolved]
  - Hyperproteinaemia [Not Recovered/Not Resolved]
  - Taste disorder [Not Recovered/Not Resolved]
  - Back pain [Not Recovered/Not Resolved]
  - Blister [Not Recovered/Not Resolved]
  - Blood creatinine increased [Not Recovered/Not Resolved]
  - Blood pressure increased [Not Recovered/Not Resolved]
  - Dyspepsia [Not Recovered/Not Resolved]
  - Dysphonia [Not Recovered/Not Resolved]
  - Headache [Not Recovered/Not Resolved]
  - Dysstasia [Not Recovered/Not Resolved]
  - Pancreatic neoplasm [Not Recovered/Not Resolved]
  - Nervousness [Not Recovered/Not Resolved]
  - Feeling cold [Not Recovered/Not Resolved]
  - Decreased appetite [Not Recovered/Not Resolved]
  - Oedema peripheral [Not Recovered/Not Resolved]
  - Weight decreased [Not Recovered/Not Resolved]
  - Injection site pain [Not Recovered/Not Resolved]
  - Gout [Not Recovered/Not Resolved]
  - Muscle spasms [Not Recovered/Not Resolved]
  - Eating disorder symptom [Not Recovered/Not Resolved]
  - Gastrointestinal disorder [Not Recovered/Not Resolved]
  - Glomerular filtration rate decreased [Not Recovered/Not Resolved]
  - Malaise [Not Recovered/Not Resolved]
  - Malignant neoplasm progression [Not Recovered/Not Resolved]
  - Pain [Not Recovered/Not Resolved]
  - Pain in extremity [Not Recovered/Not Resolved]
  - Depressed mood [Not Recovered/Not Resolved]
  - Herpes zoster [Not Recovered/Not Resolved]
  - Abdominal distension [Not Recovered/Not Resolved]
  - Oedema [Not Recovered/Not Resolved]
  - Muscle tightness [Not Recovered/Not Resolved]
  - Flatulence [Not Recovered/Not Resolved]
  - Frequent bowel movements [Not Recovered/Not Resolved]
  - Gastric haemorrhage [Not Recovered/Not Resolved]
  - Glossodynia [Not Recovered/Not Resolved]
  - Insomnia [Not Recovered/Not Resolved]
  - Nausea [Not Recovered/Not Resolved]
  - Anxiety [Not Recovered/Not Resolved]
  - Cell marker increased [Not Recovered/Not Resolved]
  - Gait disturbance [Not Recovered/Not Resolved]
  - Joint stiffness [Not Recovered/Not Resolved]
  - Influenza [Not Recovered/Not Resolved]
  - Musculoskeletal discomfort [Not Recovered/Not Resolved]
  - Palmar-plantar erythrodysaesthesia syndrome [Not Recovered/Not Resolved]
  - Arthralgia [Not Recovered/Not Resolved]
  - Pruritus [Not Recovered/Not Resolved]
  - Rash [Not Recovered/Not Resolved]
